FAERS Safety Report 6801163-0 (Version None)
Quarter: 2010Q2

REPORT INFORMATION
  Report Type: 
  Country: None (occurrence: None)
  Receive Date: 20100629
  Receipt Date: 20100617
  Transmission Date: 20101027
  Serious: Yes (Other)
  Sender: FDA-Public Use
  Company Number: US-PFIZER INC-2010076645

PATIENT
  Sex: Female
  Weight: 95.238 kg

DRUGS (3)
  1. SUTENT [Suspect]
     Indication: RENAL CANCER METASTATIC
     Dosage: 12.5 MG, 3X/DAY
     Route: 048
     Dates: start: 20100501
  2. ALENDRONIC ACID [Concomitant]
     Indication: HYPERTENSION
     Dosage: 70 MG, 2X/DAY
  3. VALSARTAN [Concomitant]
     Indication: HYPERTENSION
     Dosage: 320 MG, DAILY

REACTIONS (4)
  - BACK PAIN [None]
  - INTESTINAL OBSTRUCTION [None]
  - MUSCLE SPASMS [None]
  - PAIN [None]
